FAERS Safety Report 4807915-0 (Version None)
Quarter: 2005Q4

REPORT INFORMATION
  Report Type: 
  Country: None (occurrence: None)
  Receive Date: 20051024
  Receipt Date: 20050509
  Transmission Date: 20060501
  Serious: Yes (Hospitalization)
  Sender: FDA-Public Use
  Company Number: US-MERCK-0505USA01055

PATIENT
  Age: 48 Year
  Sex: Male
  Weight: 80 kg

DRUGS (10)
  1. VIOXX [Suspect]
     Indication: SYSTEMIC LUPUS ERYTHEMATOSUS
     Route: 048
     Dates: start: 19990101, end: 20040901
  2. VIOXX [Suspect]
     Indication: GOUT
     Route: 048
     Dates: start: 19990101, end: 20040901
  3. ALLOPURINOL [Concomitant]
     Indication: GOUT
     Route: 065
  4. PLAQUENIL [Concomitant]
     Indication: SYSTEMIC LUPUS ERYTHEMATOSUS
     Route: 065
  5. LORTAB [Concomitant]
     Route: 065
  6. PREVACID [Concomitant]
     Indication: DYSPEPSIA
     Route: 065
  7. ARAVA [Concomitant]
     Route: 065
  8. INDOCIN [Concomitant]
     Indication: SYSTEMIC LUPUS ERYTHEMATOSUS
     Route: 065
     Dates: start: 19960101
  9. INDOCIN [Concomitant]
     Indication: GOUT
     Route: 065
     Dates: start: 19960101
  10. LIPITOR [Concomitant]
     Route: 065

REACTIONS (6)
  - BLOOD CHOLESTEROL INCREASED [None]
  - DEPRESSION [None]
  - INJURY [None]
  - INTERVERTEBRAL DISC PROTRUSION [None]
  - MYOCARDIAL INFARCTION [None]
  - PANIC DISORDER [None]
